FAERS Safety Report 18349370 (Version 1)
Quarter: 2020Q4

REPORT INFORMATION
  Report Type: Spontaneous
  Country: NL (occurrence: NL)
  Receive Date: 20201006
  Receipt Date: 20201006
  Transmission Date: 20210114
  Serious: Yes (Hospitalization)
  Sender: FDA-Public Use
  Company Number: NL-TEVA-2020-NL-1835017

PATIENT
  Age: 77 Year
  Sex: Female
  Weight: 66.4 kg

DRUGS (5)
  1. METFORMINE TABLET   500MG / BRAND NAME NOT SPECIFIED [Concomitant]
     Dosage: UNIT DOSE : 500 MG , THERAPY START DATE AND END DATE : ASKU
  2. MEGESTROL TABLET 160MG / BRAND NAME NOT SPECIFIED [Suspect]
     Active Substance: MEGESTROL
     Indication: ENDOMETRIAL CANCER METASTATIC
     Dosage: 160 MILLIGRAM DAILY; 1DD1
     Dates: start: 201910, end: 20200902
  3. NIFEDIPINE TABLET MGA 30MG / BRAND NAME NOT SPECIFIED [Concomitant]
     Dosage: UNIT DOSE : 30 MG, THERAPY START DATE AND END DATE : ASKU
  4. MACROGOL/ZOUTEN PDR V DRANK (MOVIC/MOLAX/LAXT/GEN) / BRAND NAME NOT SP [Concomitant]
     Dosage: POWDER FOR DRINK, THERAPY START DATE AND END DATE : ASKU
  5. PARACETAMOL TABLET  500MG / BRAND NAME NOT SPECIFIED [Concomitant]
     Dosage: UNIT DOSE  : 500 MG, THERAPY START DATE AND END DATE : ASKU

REACTIONS (2)
  - Deep vein thrombosis [Recovering/Resolving]
  - Pulmonary embolism [Recovering/Resolving]

NARRATIVE: CASE EVENT DATE: 20200823
